FAERS Safety Report 5404868-1 (Version None)
Quarter: 2007Q3

REPORT INFORMATION
  Report Type: 
  Country: None (occurrence: None)
  Receive Date: 20070803
  Receipt Date: 20070725
  Transmission Date: 20080115
  Serious: Yes (Other)
  Sender: FDA-Public Use
  Company Number: US-JNJFOC-20070706449

PATIENT
  Age: 85 Year
  Sex: Female

DRUGS (2)
  1. ULTRAM ER [Suspect]
     Indication: PAIN
     Route: 048
  2. HYDROCODONE BITARTRATE [Concomitant]
     Route: 048

REACTIONS (2)
  - DELIRIUM [None]
  - DEMENTIA [None]
